FAERS Safety Report 7670702 (Version 3)
Quarter: 2014Q3

REPORT INFORMATION
  Report Type: Report from Study
  Country: FR (occurrence: FR)
  Receive Date: 20101116
  Receipt Date: 20140731
  Transmission Date: 20150326
  Serious: Yes (Hospitalization)
  Sender: FDA-Public Use
  Company Number: PHHY2010FR76278

PATIENT
  Age: 37 Year
  Sex: Female
  Weight: 50 kg

DRUGS (4)
  1. DESFERAL [Suspect]
     Active Substance: DEFEROXAMINE MESYLATE
     Dosage: 4 G, DAILY
     Route: 042
     Dates: start: 20090730
  2. ICL670A [Suspect]
     Active Substance: DEFERASIROX
     Indication: IRON OVERLOAD
     Dates: start: 200608, end: 20110424
  3. FERRIPROX [Concomitant]
     Active Substance: DEFERIPRONE
     Indication: IRON OVERLOAD
     Dosage: 8 TABLETS DAILY 4 DAYS BY WEEK
     Route: 048
     Dates: start: 200905
  4. EPREX [Concomitant]
     Active Substance: ERYTHROPOIETIN
     Dosage: 1000 IU, UNK

REACTIONS (4)
  - Malaise [Recovering/Resolving]
  - Klebsiella sepsis [Recovering/Resolving]
  - Pyrexia [Recovering/Resolving]
  - Chills [Recovering/Resolving]
